FAERS Safety Report 9845517 (Version 1)
Quarter: 2013Q4

REPORT INFORMATION
  Report Type: Spontaneous
  Country: US (occurrence: None)
  Receive Date: 20131219
  Receipt Date: 20131219
  Transmission Date: 20140711
  Serious: Yes (Hospitalization)
  Sender: FDA-Public Use
  Company Number: 163-20785-13091908

PATIENT
  Sex: Male
  Weight: 99.8 kg

DRUGS (2)
  1. THALOMID [Suspect]
     Dosage: 07/2004 - UNKNOWN THERAPY DATES (200 MG, 1 IN 1 D, PO
     Route: 048
     Dates: start: 200407
  2. DEXAMETHASONE (DEXAMETHASONE) [Concomitant]

REACTIONS (1)
  - Deep vein thrombosis [None]
